FAERS Safety Report 25460404 (Version 2)
Quarter: 2025Q2

REPORT INFORMATION
  Report Type: Spontaneous
  Country: CA (occurrence: CA)
  Receive Date: 20250620
  Receipt Date: 20250625
  Transmission Date: 20250716
  Serious: Yes (Other)
  Sender: SAMSUNG BIOEPIS
  Company Number: CA-SAMSUNG BIOEPIS-SB-2025-21302

PATIENT
  Age: 35 Year
  Sex: Male

DRUGS (1)
  1. INFLIXIMAB [Suspect]
     Active Substance: INFLIXIMAB
     Indication: Crohn^s disease
     Dosage: ESCALATING DOSES OF UP TO 10 MG/KG;
     Dates: start: 201906

REACTIONS (3)
  - Dilated cardiomyopathy [Unknown]
  - Myocarditis [Unknown]
  - COVID-19 [Unknown]

NARRATIVE: CASE EVENT DATE: 20221101
